FAERS Safety Report 9916137 (Version 1)
Quarter: 2014Q1

REPORT INFORMATION
  Report Type: Spontaneous
  Country: US (occurrence: None)
  Receive Date: 20140219
  Receipt Date: 20140219
  Transmission Date: 20141002
  Serious: Yes (Other)
  Sender: FDA-Public Use
  Company Number: CC14-0026

PATIENT
  Age: 61 Year
  Sex: Female
  Weight: 45.36 kg

DRUGS (2)
  1. METRONIDAZOLE [Suspect]
     Indication: ROSACEA
     Dosage: APPLY ONCE DAILY
     Dates: start: 201311, end: 201401
  2. ESTROGEL [Concomitant]

REACTIONS (5)
  - Skin irritation [None]
  - Erythema [None]
  - Pruritus [None]
  - Dry skin [None]
  - Reaction to drug excipients [None]
